FAERS Safety Report 13374474 (Version 2)
Quarter: 2017Q1

REPORT INFORMATION
  Report Type: Report from Study
  Country: CA (occurrence: CA)
  Receive Date: 20170327
  Receipt Date: 20170331
  Transmission Date: 20170429
  Serious: Yes (Other)
  Sender: FDA-Public Use
  Company Number: CA-JNJFOC-20170321530

PATIENT
  Sex: Female

DRUGS (1)
  1. REMICADE [Suspect]
     Active Substance: INFLIXIMAB
     Indication: CROHN^S DISEASE
     Route: 042
     Dates: start: 20160816

REACTIONS (7)
  - Rash [Unknown]
  - Lacrimation increased [Unknown]
  - Eye irritation [Unknown]
  - Cervix carcinoma [Unknown]
  - Arthritis [Unknown]
  - Acrochordon [Unknown]
  - Eye pruritus [Unknown]
